FAERS Safety Report 12602127 (Version 6)
Quarter: 2016Q3

REPORT INFORMATION
  Report Type: Spontaneous
  Country: US (occurrence: US)
  Receive Date: 20160728
  Receipt Date: 20160928
  Transmission Date: 20161109
  Serious: No
  Sender: FDA-Public Use
  Company Number: US-PFIZER INC-2016342958

PATIENT
  Age: 78 Year
  Sex: Male
  Weight: 72.56 kg

DRUGS (2)
  1. SUTENT [Suspect]
     Active Substance: SUNITINIB MALATE
     Indication: METASTATIC RENAL CELL CARCINOMA
     Dosage: 50 MG, CYCLIC (2 WEEKS ON/1 WEEK OFF)
     Dates: start: 20160629
  2. ZOMETA [Concomitant]
     Active Substance: ZOLEDRONIC ACID
     Dosage: UNK

REACTIONS (8)
  - Fatigue [Recovering/Resolving]
  - Pain [Recovering/Resolving]
  - Sleep disorder [Unknown]
  - Arthralgia [Recovering/Resolving]
  - Bone pain [Unknown]
  - Oral pain [Unknown]
  - Neck pain [Unknown]
  - Musculoskeletal pain [Unknown]
